FAERS Safety Report 5381590-1 (Version None)
Quarter: 2007Q2

REPORT INFORMATION
  Report Type: 
  Country: None (occurrence: None)
  Receive Date: 20070629
  Receipt Date: 20070122
  Transmission Date: 20071010
  Serious: Yes (Other)
  Sender: FDA-Public Use
  Company Number: 2007006428

PATIENT
  Age: 5 Year
  Sex: Male

DRUGS (1)
  1. ZOLOFT [Suspect]
     Dosage: (20 MG);
     Dates: start: 20070118, end: 20070119

REACTIONS (2)
  - ACCIDENTAL OVERDOSE [None]
  - HALLUCINATION [None]
